FAERS Safety Report 23029106 (Version 1)
Quarter: 2023Q4

REPORT INFORMATION
  Report Type: Spontaneous
  Country: CA (occurrence: CA)
  Receive Date: 20231004
  Receipt Date: 20231004
  Transmission Date: 20240110
  Serious: Yes (Other)
  Sender: FDA-Public Use
  Company Number: CA-PFIZER INC-202300312750

PATIENT
  Age: 46 Year
  Sex: Female
  Weight: 88 kg

DRUGS (10)
  1. LIDOCAINE HYDROCHLORIDE [Suspect]
     Active Substance: LIDOCAINE HYDROCHLORIDE
     Dosage: 80 MG, SINGLE
     Route: 042
  2. METRONIDAZOLE [Suspect]
     Active Substance: METRONIDAZOLE
     Indication: Prophylaxis
     Dosage: 500 MG, SINGLE
     Route: 042
  3. METRONIDAZOLE [Suspect]
     Active Substance: METRONIDAZOLE
     Indication: Preoperative care
  4. MIDAZOLAM [Suspect]
     Active Substance: MIDAZOLAM
     Dosage: 2 MG, SINGLE
     Route: 042
  5. ROCURONIUM BROMIDE [Suspect]
     Active Substance: ROCURONIUM BROMIDE
     Dosage: 50 MG, SINGLE
     Route: 042
  6. ANCEF [Suspect]
     Active Substance: CEFAZOLIN SODIUM
     Indication: Prophylaxis
     Dosage: 2 G, SINGLE
     Route: 041
  7. ANCEF [Suspect]
     Active Substance: CEFAZOLIN SODIUM
     Indication: Preoperative care
  8. FENTANYL [Suspect]
     Active Substance: FENTANYL
     Dosage: 150 UG, SINGLE
  9. PROPOFOL [Suspect]
     Active Substance: PROPOFOL
     Dosage: 150 MG, SINGLE
     Route: 051
  10. REMIFENTANIL [Suspect]
     Active Substance: REMIFENTANIL
     Dosage: UNK, SINGLE
     Route: 051

REACTIONS (2)
  - Anaphylactic reaction [Recovered/Resolved]
  - Procedural hypotension [Recovered/Resolved]
